FAERS Safety Report 8860422 (Version 1)
Quarter: 2012Q4

REPORT INFORMATION
  Report Type: Report from Study
  Country: JP (occurrence: JP)
  Receive Date: 20121025
  Receipt Date: 20121025
  Transmission Date: 20130627
  Serious: Yes (Hospitalization)
  Sender: FDA-Public Use
  Company Number: JP-009507513-1210JPN005511

PATIENT
  Age: 42 Year
  Sex: Male
  Weight: 73 kg

DRUGS (11)
  1. PEGINTRON [Suspect]
     Indication: HEPATITIS C
     Dosage: 1.5 Microgram per kilogram, UNK
     Route: 058
     Dates: start: 20120727, end: 20120817
  2. REBETOL [Suspect]
     Indication: HEPATITIS C
     Dosage: 800 mg, qd
     Route: 048
     Dates: start: 20120727, end: 20120822
  3. TELAVIC [Suspect]
     Indication: HEPATITIS C
     Dosage: 1500 milligrams, qd
     Route: 048
     Dates: start: 20120727, end: 20120822
  4. SODIUM CHLORIDE [Concomitant]
     Dosage: UNK
     Route: 042
  5. MOHRUS [Concomitant]
     Route: 062
  6. ADVATE [Concomitant]
     Route: 042
  7. MALFA [Concomitant]
     Route: 048
  8. SANMEL [Concomitant]
     Dosage: solution
     Route: 048
  9. THROMBIN [Concomitant]
     Dosage: FGR
     Route: 048
  10. ADONA [Concomitant]
     Route: 042
  11. LOXONIN [Concomitant]
     Route: 062

REACTIONS (1)
  - Synovial cyst [Unknown]
